FAERS Safety Report 24689530 (Version 3)
Quarter: 2024Q4

REPORT INFORMATION
  Report Type: Spontaneous
  Country: US (occurrence: US)
  Receive Date: 20241203
  Receipt Date: 20241205
  Transmission Date: 20250114
  Serious: Yes (Hospitalization)
  Sender: ROCHE
  Company Number: US-ROCHE-10000145468

PATIENT
  Age: 44 Year
  Sex: Female
  Weight: 69 kg

DRUGS (22)
  1. RITUXIMAB [Suspect]
     Active Substance: RITUXIMAB
     Indication: Product used for unknown indication
     Dosage: LAST DOSE ON  09-SEP-2024
     Route: 042
     Dates: start: 20240924
  2. RITUXIMAB [Suspect]
     Active Substance: RITUXIMAB
     Indication: Immunosuppression
     Route: 042
     Dates: start: 20240919, end: 20240919
  3. RITUXIMAB [Suspect]
     Active Substance: RITUXIMAB
     Route: 042
     Dates: start: 20241004, end: 20241004
  4. SIROLIMUS [Suspect]
     Active Substance: SIROLIMUS
     Indication: Product used for unknown indication
     Route: 048
     Dates: start: 20240922
  5. SIROLIMUS [Suspect]
     Active Substance: SIROLIMUS
     Indication: Immunosuppression
     Route: 048
     Dates: start: 20241005, end: 20241017
  6. SIROLIMUS [Suspect]
     Active Substance: SIROLIMUS
     Route: 048
     Dates: start: 20241018
  7. DEXAMETHASONE [Suspect]
     Active Substance: DEXAMETHASONE
     Indication: Immunosuppression
     Route: 048
     Dates: start: 20240926
  8. DEXAMETHASONE [Suspect]
     Active Substance: DEXAMETHASONE
     Route: 042
     Dates: start: 20241009, end: 20241106
  9. DEXAMETHASONE [Suspect]
     Active Substance: DEXAMETHASONE
     Route: 042
     Dates: start: 20241107, end: 20241113
  10. DEXAMETHASONE [Suspect]
     Active Substance: DEXAMETHASONE
     Route: 042
     Dates: start: 20241114
  11. DEXAMETHASONE [Suspect]
     Active Substance: DEXAMETHASONE
     Indication: Immunosuppression
     Route: 042
  12. VITAMIN D NOS [Concomitant]
     Active Substance: CHOLECALCIFEROL\ERGOCALCIFEROL
     Dates: start: 202308
  13. FLUOXETINE HYDROCHLORIDE [Concomitant]
     Active Substance: FLUOXETINE HYDROCHLORIDE
     Dates: start: 20230803
  14. VITAMIN B12 [Concomitant]
     Active Substance: CYANOCOBALAMIN
     Dates: start: 202308
  15. VALACYCLOVIR HYDROCHLORIDE [Concomitant]
     Active Substance: VALACYCLOVIR HYDROCHLORIDE
     Dates: start: 2017
  16. BUSPIRONE [Concomitant]
     Active Substance: BUSPIRONE HYDROCHLORIDE
     Dates: start: 20231206
  17. CITALOPRAM [Concomitant]
     Active Substance: CITALOPRAM
     Dates: start: 20240625
  18. PANTOPRAZOLE [Concomitant]
     Active Substance: PANTOPRAZOLE
     Dates: start: 2016
  19. CETIRIZINE [Concomitant]
     Active Substance: CETIRIZINE HYDROCHLORIDE
     Dates: start: 1980
  20. HYDROXYZINE [Concomitant]
     Active Substance: HYDROXYZINE HYDROCHLORIDE
     Dates: start: 2003
  21. DIAZEPAM [Concomitant]
     Active Substance: DIAZEPAM
     Dates: start: 20240917
  22. SENNOSIDES A AND B [Concomitant]
     Active Substance: SENNOSIDES A AND B
     Dates: start: 20241013

REACTIONS (13)
  - Pyrexia [Recovered/Resolved]
  - Immunosuppressant drug level increased [Unknown]
  - Cellulitis [Not Recovered/Not Resolved]
  - Bursitis [Recovered/Resolved]
  - Fall [Unknown]
  - Debridement [Unknown]
  - Weight bearing difficulty [Unknown]
  - Skin abrasion [Unknown]
  - Bursa removal [Unknown]
  - Joint swelling [Unknown]
  - Erythema [Unknown]
  - Arthralgia [Unknown]
  - Purulent discharge [Unknown]

NARRATIVE: CASE EVENT DATE: 20241014
